FAERS Safety Report 9979674 (Version 1)
Quarter: 2014Q1

REPORT INFORMATION
  Report Type: Report from Study
  Country: US (occurrence: US)
  Receive Date: 20140306
  Receipt Date: 20140306
  Transmission Date: 20141002
  Serious: No
  Sender: FDA-Public Use
  Company Number: US-ABBVIE-13P-163-1170411-00

PATIENT
  Age: 38 Year
  Sex: Female

DRUGS (7)
  1. HUMIRA [Suspect]
     Indication: CROHN^S DISEASE
     Dosage: LOADING DOSE
     Dates: start: 20131114, end: 20131114
  2. HUMIRA [Suspect]
  3. LABETALOL [Concomitant]
     Indication: HYPERTENSION
     Route: 048
  4. SINGULAIR [Concomitant]
     Indication: ASTHMA
     Route: 048
  5. GILDESS [Concomitant]
     Indication: CONTRACEPTION
     Dosage: DAILY
     Route: 048
  6. LIALDA [Concomitant]
     Indication: CROHN^S DISEASE
     Route: 048
  7. PREDNISONE [Concomitant]
     Indication: CROHN^S DISEASE
     Route: 048

REACTIONS (1)
  - Flatulence [Recovering/Resolving]
